FAERS Safety Report 8922304 (Version 1)
Quarter: 2012Q4

REPORT INFORMATION
  Report Type: 
  Country: DE (occurrence: DE)
  Receive Date: 20121123
  Receipt Date: 20121123
  Transmission Date: 20130627
  Serious: No
  Sender: FDA-Public Use
  Company Number: DE-SANOFI-AVENTIS-2012SA085921

PATIENT
  Age: 75 Year
  Sex: Female
  Weight: 64 kg

DRUGS (2)
  1. MULTAQ [Suspect]
     Indication: DRUG USE FOR UNKNOWN INDICATION
     Route: 048
  2. L-THYROXIN HENNING [Concomitant]

REACTIONS (1)
  - Blood creatinine increased [Unknown]
